FAERS Safety Report 7374680-5 (Version None)
Quarter: 2011Q1

REPORT INFORMATION
  Report Type: 
  Country: None (occurrence: None)
  Receive Date: 20110325
  Receipt Date: 20100719
  Transmission Date: 20110831
  Serious: No
  Sender: FDA-Public Use
  Company Number: US-MYLANLABS-2010S1013101

PATIENT
  Age: 75 Year
  Sex: Female
  Weight: 77.11 kg

DRUGS (5)
  1. VICODIN [Concomitant]
     Indication: PAIN
     Dosage: 10MG/325MG Q4-6H PRN
     Route: 048
  2. AVAPRO [Concomitant]
     Indication: BLOOD PRESSURE INCREASED
     Route: 048
  3. HYDROCHLOROTHIAZIDE [Concomitant]
     Indication: BLOOD PRESSURE INCREASED
     Route: 048
  4. FENTANYL-100 [Suspect]
     Indication: BACK PAIN
     Dosage: X1
     Route: 062
     Dates: start: 20100711, end: 20100713
  5. NORVASC [Concomitant]
     Indication: BLOOD PRESSURE INCREASED
     Route: 048

REACTIONS (1)
  - FEELING ABNORMAL [None]
